FAERS Safety Report 4779504-8 (Version None)
Quarter: 2005Q3

REPORT INFORMATION
  Report Type: 
  Country: None (occurrence: None)
  Receive Date: 20050923
  Receipt Date: 20050915
  Transmission Date: 20060218
  Serious: Yes (Other)
  Sender: FDA-Public Use
  Company Number: 2005129629

PATIENT
  Sex: Female

DRUGS (7)
  1. ZOLOFT [Suspect]
     Indication: ILL-DEFINED DISORDER
     Dosage: 100 MG (100 MG, 1 IN 1 D), ORAL
     Route: 048
     Dates: start: 19970101
  2. XANAX [Suspect]
     Indication: ILL-DEFINED DISORDER
     Dosage: (THREE TIMES DAILY), ORAL
     Route: 048
     Dates: start: 19970101, end: 20040101
  3. XANAX [Suspect]
     Indication: ILL-DEFINED DISORDER
     Dosage: 1 MG (1 MG, 1 IN 1 D), ORAL
     Route: 048
     Dates: start: 20040101
  4. VALIUM [Concomitant]
  5. FLEXERIL (CYCLOBENZPRINE HYDROCHLORIDE) [Concomitant]
  6. ISOPTIN [Concomitant]
  7. LORTAB [Concomitant]

REACTIONS (4)
  - CONDITION AGGRAVATED [None]
  - FRACTURE [None]
  - INTERVERTEBRAL DISC DISORDER [None]
  - WEIGHT INCREASED [None]
